FAERS Safety Report 20548421 (Version 1)
Quarter: 2022Q1

REPORT INFORMATION
  Report Type: Spontaneous
  Country: US (occurrence: US)
  Receive Date: 20220303
  Receipt Date: 20220303
  Transmission Date: 20220423
  Serious: No
  Sender: FDA-Public Use
  Company Number: US-ALLERGAN-2108023US

PATIENT
  Sex: Female

DRUGS (2)
  1. RESTASIS [Suspect]
     Active Substance: CYCLOSPORINE
     Indication: Dry eye
     Dosage: 4 GTT, BID
     Route: 047
     Dates: start: 2015
  2. SYSTANE NOS [Concomitant]
     Active Substance: HYPROMELLOSE 2910 (4000 MPA.S)\ POLYETHYLENE GLYCOL 400\PROPYLENE GLYCOL
     Indication: Eye lubrication therapy

REACTIONS (1)
  - Increased upper airway secretion [Not Recovered/Not Resolved]
